FAERS Safety Report 10180453 (Version 2)
Quarter: 2014Q2

REPORT INFORMATION
  Report Type: Spontaneous
  Country: US (occurrence: US)
  Receive Date: 20140519
  Receipt Date: 20140519
  Transmission Date: 20141212
  Serious: Yes (Other)
  Sender: FDA-Public Use
  Company Number: US-AMGEN-USASP2013072932

PATIENT
  Age: 82 Year
  Sex: Female
  Weight: 52.15 kg

DRUGS (5)
  1. PROLIA [Suspect]
     Indication: OSTEOPOROSIS POSTMENOPAUSAL
     Dosage: 60 MG, Q6MO
     Route: 058
     Dates: start: 20110623, end: 20130829
  2. PROLIA [Suspect]
     Dosage: 60 MG, Q6MO
     Route: 058
     Dates: start: 20130228, end: 20130829
  3. PROLIA [Suspect]
     Dosage: 60 MG, Q6MO
     Route: 058
     Dates: start: 20130829, end: 20130829
  4. AMITIZA [Concomitant]
     Indication: CONSTIPATION
     Dosage: 8 MG, BID
     Route: 048
     Dates: start: 20100617
  5. SIMVASTATIN [Concomitant]
     Indication: HYPERLIPIDAEMIA
     Dosage: 40 MG, QHS
     Route: 048
     Dates: start: 20130415

REACTIONS (3)
  - Cellulitis [Unknown]
  - Rash [Recovered/Resolved]
  - Upper respiratory tract infection [Recovered/Resolved]
